FAERS Safety Report 25918701 (Version 1)
Quarter: 2025Q4

REPORT INFORMATION
  Report Type: Spontaneous
  Country: US (occurrence: US)
  Receive Date: 20251014
  Receipt Date: 20251014
  Transmission Date: 20260118
  Serious: No
  Sender: KALVISTA PHARMACEUTICALS
  Company Number: US-KP-00056

PATIENT
  Age: 13 Year
  Sex: Male
  Weight: 156.94 kg

DRUGS (3)
  1. EKTERLY [Suspect]
     Active Substance: SEBETRALSTAT
     Indication: Hereditary angioedema
     Dosage: TIME INTERVAL: AS NECESSARY
     Route: 048
     Dates: start: 20250813
  2. TAKHZYRO [Concomitant]
     Active Substance: LANADELUMAB-FLYO
     Indication: Prophylaxis
  3. KALBITOR SDV (3X1ML) [Concomitant]

REACTIONS (2)
  - Incorrect dose administered [Unknown]
  - Off label use [Unknown]

NARRATIVE: CASE EVENT DATE: 20250828
